FAERS Safety Report 5978481-1 (Version None)
Quarter: 2008Q4

REPORT INFORMATION
  Report Type: 
  Country: None (occurrence: None)
  Receive Date: 20081126
  Receipt Date: 20081119
  Transmission Date: 20090506
  Serious: Yes (Other)
  Sender: FDA-Public Use
  Company Number: 1000001795

PATIENT
  Age: 75 Year
  Sex: Female

DRUGS (9)
  1. NAMENDA [Suspect]
     Indication: DEMENTIA
     Dosage: 5 MG (5 MG, 1 IN 1 D),ORAL; 10 MG (5MG, 2 IN 1 D),ORAL; 15 MG,ORAL; 20 MG (10MG, 2 IN 1 D), ORAL
     Route: 048
     Dates: start: 20081020, end: 20081026
  2. NAMENDA [Suspect]
     Indication: DEMENTIA
     Dosage: 5 MG (5 MG, 1 IN 1 D),ORAL; 10 MG (5MG, 2 IN 1 D),ORAL; 15 MG,ORAL; 20 MG (10MG, 2 IN 1 D), ORAL
     Route: 048
     Dates: start: 20081027, end: 20081102
  3. NAMENDA [Suspect]
     Indication: DEMENTIA
     Dosage: 5 MG (5 MG, 1 IN 1 D),ORAL; 10 MG (5MG, 2 IN 1 D),ORAL; 15 MG,ORAL; 20 MG (10MG, 2 IN 1 D), ORAL
     Route: 048
     Dates: start: 20081103, end: 20081109
  4. NAMENDA [Suspect]
     Indication: DEMENTIA
     Dosage: 5 MG (5 MG, 1 IN 1 D),ORAL; 10 MG (5MG, 2 IN 1 D),ORAL; 15 MG,ORAL; 20 MG (10MG, 2 IN 1 D), ORAL
     Route: 048
     Dates: start: 20081110, end: 20081114
  5. ARICEPT [Concomitant]
  6. PRILOSEC [Concomitant]
  7. BONIVA [Concomitant]
  8. LACTULOSE [Concomitant]
  9. GLUCOSAMINE CHONDROITIN [Concomitant]

REACTIONS (1)
  - PANCREATITIS [None]
